FAERS Safety Report 20512672 (Version 3)
Quarter: 2022Q2

REPORT INFORMATION
  Report Type: Report from Study
  Country: CA (occurrence: CA)
  Receive Date: 20220224
  Receipt Date: 20220425
  Transmission Date: 20220721
  Serious: Yes (Other)
  Sender: FDA-Public Use
  Company Number: CA-JNJFOC-20220246897

PATIENT
  Age: 63 Year
  Sex: Female
  Weight: 97 kg

DRUGS (1)
  1. REMICADE [Suspect]
     Active Substance: INFLIXIMAB
     Indication: Colitis ulcerative
     Dosage: EXPIRY DATE-31-OCT-2024
     Route: 042

REACTIONS (2)
  - Skin cancer [Not Recovered/Not Resolved]
  - Malignant melanoma [Recovered/Resolved]
